FAERS Safety Report 9659461 (Version 6)
Quarter: 2013Q4

REPORT INFORMATION
  Report Type: Report from Study
  Country: HU (occurrence: HU)
  Receive Date: 20131031
  Receipt Date: 20131211
  Transmission Date: 20140711
  Serious: Yes (Death, Hospitalization)
  Sender: FDA-Public Use
  Company Number: HU-SANOFI-AVENTIS-2012SA015046

PATIENT
  Age: 78 Year
  Sex: Male
  Weight: 72 kg

DRUGS (9)
  1. CABAZITAXEL [Suspect]
     Indication: PROSTATE CANCER
     Route: 042
     Dates: start: 20120130, end: 20120130
  2. CABAZITAXEL [Suspect]
     Indication: PROSTATE CANCER
     Route: 042
     Dates: start: 20120220, end: 20120220
  3. PREDNISOLONE [Suspect]
     Indication: PROSTATE CANCER
     Route: 048
     Dates: start: 20120130, end: 20120224
  4. FRAGMIN [Concomitant]
     Route: 065
  5. CONCOR [Concomitant]
  6. RYTMONORM [Concomitant]
  7. PANTOPRAZOLE [Concomitant]
  8. CYMBALTA [Concomitant]
     Route: 065
  9. NOACID [Concomitant]
     Route: 065

REACTIONS (2)
  - Large intestine perforation [Fatal]
  - Peritonitis [Fatal]
